FAERS Safety Report 6134444-7 (Version None)
Quarter: 2009Q1

REPORT INFORMATION
  Report Type: 
  Country: None (occurrence: None)
  Receive Date: 20090327
  Receipt Date: 20090319
  Transmission Date: 20090719
  Serious: Yes (Other)
  Sender: FDA-Public Use
  Company Number: US-JNJCH-2009007847

PATIENT
  Age: 75 Year
  Sex: Male
  Weight: 71.7 kg

DRUGS (1)
  1. BENADRYL CHILDREN'S ALLERGY AND SINUS [Suspect]
     Indication: HYPERSENSITIVITY
     Dosage: TEXT:UNSPECIFIED
     Route: 048

REACTIONS (1)
  - BLOOD GLUCOSE INCREASED [None]
